FAERS Safety Report 7139600-7 (Version None)
Quarter: 2010Q4

REPORT INFORMATION
  Report Type: 
  Country: None (occurrence: None)
  Receive Date: 20101207
  Receipt Date: 20101111
  Transmission Date: 20110411
  Serious: Yes (Other)
  Sender: FDA-Public Use
  Company Number: DE-AMGEN-DEUSP2010005389

PATIENT

DRUGS (6)
  1. ENBREL [Suspect]
     Indication: PSORIATIC ARTHROPATHY
     Dosage: 50 MG, UNK
     Route: 058
     Dates: start: 20091201, end: 20100201
  2. ENBREL [Suspect]
     Indication: PRODUCT USED FOR UNKNOWN INDICATION
     Dosage: UNK UNK, UNK
     Dates: start: 20100101, end: 20100601
  3. PREDNISOLONE [Concomitant]
     Indication: PSORIATIC ARTHROPATHY
     Dosage: 50 MG,  PER DAY
  4. PREDNISOLONE [Concomitant]
     Indication: FIBROMYALGIA
     Dosage: 20 MG, PER DAY
  5. IBUPROFEN [Concomitant]
     Indication: PSORIATIC ARTHROPATHY
     Dosage: 2400 MG, UNK
  6. IBUPROFEN [Concomitant]
     Indication: FIBROMYALGIA

REACTIONS (6)
  - ARTHRALGIA [None]
  - DRUG INEFFECTIVE [None]
  - INFECTION [None]
  - MENINGIOMA [None]
  - RASH [None]
  - SKIN ULCER [None]
